FAERS Safety Report 7530054-5 (Version None)
Quarter: 2011Q2

REPORT INFORMATION
  Report Type: 
  Country: None (occurrence: None)
  Receive Date: 20110606
  Receipt Date: 20110606
  Transmission Date: 20111010
  Serious: Yes (Life-Threatening, Hospitalization)
  Sender: FDA-Public Use
  Company Number: None

PATIENT
  Age: 45 Year
  Sex: Female
  Weight: 66.6788 kg

DRUGS (9)
  1. YAZ [Concomitant]
  2. CLARITIN [Concomitant]
  3. FISH OIL [Concomitant]
  4. FLOVENT [Concomitant]
  5. DROSPIRENONE AND ETHINYL ESTRADIOL [Suspect]
     Indication: CONTRACEPTION
     Dosage: 1 PILL DAILY PO
     Route: 048
     Dates: start: 20100905, end: 20110411
  6. DROSPIRENONE AND ETHINYL ESTRADIOL [Suspect]
     Indication: MENSTRUAL DISORDER
     Dosage: 1 PILL DAILY PO
     Route: 048
     Dates: start: 20100905, end: 20110411
  7. FLONASE [Concomitant]
  8. ALBUTEROL SULFATE AUTOHALER [Concomitant]
  9. MULTI-VITAMIN [Concomitant]

REACTIONS (1)
  - PULMONARY THROMBOSIS [None]
